FAERS Safety Report 19070149 (Version 2)
Quarter: 2021Q2

REPORT INFORMATION
  Report Type: Spontaneous
  Country: US (occurrence: US)
  Receive Date: 20210329
  Receipt Date: 20210406
  Transmission Date: 20210717
  Serious: Yes (Other)
  Sender: FDA-Public Use
  Company Number: US-BAUSCH-BL-2021-010538

PATIENT
  Sex: Female

DRUGS (2)
  1. MOVIPREP [Suspect]
     Active Substance: ASCORBIC ACID\POLYETHYLENE GLYCOL 3350\POTASSIUM CHLORIDE\SODIUM ASCORBATE\SODIUM CHLORIDE\SODIUM SULFATE
     Indication: CONSTIPATION
     Dosage: HAD BEEN USING MOVIPREP EVERY DAY FOR 10 TO 11 YEARS
     Route: 048
  2. MOVIPREP [Suspect]
     Active Substance: ASCORBIC ACID\POLYETHYLENE GLYCOL 3350\POTASSIUM CHLORIDE\SODIUM ASCORBATE\SODIUM CHLORIDE\SODIUM SULFATE
     Indication: PRODUCT USE IN UNAPPROVED INDICATION

REACTIONS (4)
  - Gingival disorder [Unknown]
  - Type 1 diabetes mellitus [Unknown]
  - Incorrect dose administered [Unknown]
  - Product use in unapproved indication [Unknown]
